FAERS Safety Report 8606863-8 (Version None)
Quarter: 2012Q3

REPORT INFORMATION
  Report Type: 
  Country: None (occurrence: None)
  Receive Date: 20120820
  Receipt Date: 20120811
  Transmission Date: 20120928
  Serious: Yes (Hospitalization)
  Sender: FDA-Public Use
  Company Number: US-ABBOTT-12P-163-0967640-00

PATIENT
  Age: 40 Year
  Sex: Male

DRUGS (4)
  1. AZATHIOPRINE [Concomitant]
     Indication: PRODUCT USED FOR UNKNOWN INDICATION
     Dosage: 4 DAILY
  2. HUMIRA [Suspect]
     Indication: CROHN'S DISEASE
     Dosage: LOADING DOSE
     Dates: start: 20120725, end: 20120725
  3. HUMIRA [Suspect]
  4. PREDNISONE [Concomitant]
     Indication: PRODUCT USED FOR UNKNOWN INDICATION
     Dosage: TAPERING DOWN 1/2 PILL WEEKLY; 2 DAILY

REACTIONS (4)
  - PNEUMONIA [None]
  - HYPERSOMNIA [None]
  - PRODUCTIVE COUGH [None]
  - HYPOTENSION [None]
